FAERS Safety Report 24136963 (Version 1)
Quarter: 2024Q3

REPORT INFORMATION
  Report Type: Spontaneous
  Country: US (occurrence: None)
  Receive Date: 20240724
  Receipt Date: 20240724
  Transmission Date: 20241016
  Serious: Yes (Hospitalization)
  Sender: Public
  Company Number: None

PATIENT
  Age: 66 Year
  Sex: Male
  Weight: 93.4 kg

DRUGS (1)
  1. RITUXIMAB [Suspect]
     Active Substance: RITUXIMAB
     Dosage: OTHER FREQUENCY : MONTHLY;?
     Route: 042
     Dates: start: 20240618, end: 20240723

REACTIONS (12)
  - Chills [None]
  - Infusion related reaction [None]
  - Chest discomfort [None]
  - Hypopnoea [None]
  - Cough [None]
  - Chest discomfort [None]
  - Incoherent [None]
  - Tachycardia [None]
  - Hypotension [None]
  - Blood lactic acid increased [None]
  - Pulmonary oedema [None]
  - Disorientation [None]

NARRATIVE: CASE EVENT DATE: 20240723
